FAERS Safety Report 9046555 (Version 1)
Quarter: 2013Q1

REPORT INFORMATION
  Report Type: Spontaneous
  Country: PT (occurrence: PT)
  Receive Date: 20130203
  Receipt Date: 20130203
  Transmission Date: 20140127
  Serious: Yes (Life-Threatening, Disabling)
  Sender: FDA-Public Use
  Company Number: PT-TEVA-382646ISR

PATIENT
  Age: 27 None
  Sex: Male
  Weight: 55 kg

DRUGS (2)
  1. DIAZEPAM RATIOPHARM 5 MG COMPRIMIDOS [Suspect]
     Indication: ANXIETY
     Route: 048
     Dates: start: 20111026
  2. ABILIFY [Suspect]
     Indication: DEPRESSION
     Route: 048
     Dates: start: 20111026

REACTIONS (9)
  - Loss of consciousness [Unknown]
  - Insomnia [Unknown]
  - Dizziness [Unknown]
  - Homicidal ideation [Unknown]
  - Suicidal ideation [Unknown]
  - Balance disorder [Unknown]
  - Agitation [Unknown]
  - Toxicity to various agents [Unknown]
  - Aggression [Unknown]
